FAERS Safety Report 6743226-4 (Version None)
Quarter: 2010Q2

REPORT INFORMATION
  Report Type: 
  Country: None (occurrence: None)
  Receive Date: 20100527
  Receipt Date: 20100524
  Transmission Date: 20101027
  Serious: Yes (Other)
  Sender: FDA-Public Use
  Company Number: US-BAYER-201015901BCC

PATIENT
  Age: 73 Year
  Sex: Male
  Weight: 78 kg

DRUGS (2)
  1. ALEVE (CAPLET) [Suspect]
     Indication: ARTHRALGIA
     Dosage: AS USED: 440 MG  UNIT DOSE: 220 MG
     Route: 048
  2. ASPIRIN [Concomitant]
     Route: 065

REACTIONS (1)
  - PHARYNGEAL OEDEMA [None]
